FAERS Safety Report 5193013-6 (Version None)
Quarter: 2006Q4

REPORT INFORMATION
  Report Type: 
  Country: None (occurrence: None)
  Receive Date: 20061228
  Receipt Date: 20060212
  Transmission Date: 20070319
  Serious: No
  Sender: FDA-Public Use
  Company Number: US-GLAXOSMITHKLINE-A0594642A

PATIENT
  Age: 80 Year
  Sex: Male
  Weight: 84.1 kg

DRUGS (4)
  1. AVODART [Suspect]
     Indication: BENIGN PROSTATIC HYPERPLASIA
     Dosage: .5MG PER DAY
     Route: 048
     Dates: start: 20050713, end: 20060101
  2. LASIX [Concomitant]
  3. FLOMAX [Concomitant]
  4. ASPIRIN [Concomitant]

REACTIONS (4)
  - BREAST MASS [None]
  - BREAST PAIN [None]
  - GYNAECOMASTIA [None]
  - NIPPLE PAIN [None]
